FAERS Safety Report 15886273 (Version 9)
Quarter: 2019Q3

REPORT INFORMATION
  Report Type: Report from Study
  Country: IT (occurrence: IT)
  Receive Date: 20190129
  Receipt Date: 20190920
  Transmission Date: 20191004
  Serious: Yes (Death, Hospitalization)
  Sender: FDA-Public Use
  Company Number: IT-EISAI MEDICAL RESEARCH-EC-2019-051162

PATIENT
  Age: 78 Year
  Sex: Female
  Weight: 55 kg

DRUGS (8)
  1. PEMBROLIZUMAB. [Suspect]
     Active Substance: PEMBROLIZUMAB
     Indication: HEPATOCELLULAR CARCINOMA
     Route: 041
     Dates: start: 20190118, end: 20190118
  2. PROPRANOLOL (INDERAL) [Concomitant]
  3. LASIX [Concomitant]
     Active Substance: FUROSEMIDE
  4. METFORMIN [Concomitant]
     Active Substance: METFORMIN HYDROCHLORIDE
  5. RIFAXIMIN. [Concomitant]
     Active Substance: RIFAXIMIN
  6. LENVATINIB [Suspect]
     Active Substance: LENVATINIB
     Indication: HEPATOCELLULAR CARCINOMA
     Route: 048
     Dates: start: 20190118, end: 20190125
  7. URBASON [Concomitant]
     Active Substance: METHYLPREDNISOLONE
  8. KANRENOL [Concomitant]
     Active Substance: CANRENOATE POTASSIUM

REACTIONS (5)
  - Hepatic encephalopathy [Not Recovered/Not Resolved]
  - Neutropenia [Recovered/Resolved]
  - Malignant neoplasm progression [Fatal]
  - Hepatic function abnormal [Not Recovered/Not Resolved]
  - Asthenia [Recovered/Resolved]

NARRATIVE: CASE EVENT DATE: 20190122
